FAERS Safety Report 6837880-6 (Version None)
Quarter: 2010Q3

REPORT INFORMATION
  Report Type: 
  Country: None (occurrence: None)
  Receive Date: 20100713
  Receipt Date: 20070524
  Transmission Date: 20110219
  Serious: No
  Sender: FDA-Public Use
  Company Number: US-PFIZER INC-2007044403

PATIENT
  Age: 53 Year
  Sex: Female
  Weight: 53 kg

DRUGS (2)
  1. CHANTIX [Suspect]
     Indication: SMOKING CESSATION THERAPY
     Dates: start: 20070501, end: 20070523
  2. LUNESTA [Concomitant]

REACTIONS (3)
  - AGITATION [None]
  - DECREASED APPETITE [None]
  - INSOMNIA [None]
